FAERS Safety Report 7533802-3 (Version None)
Quarter: 2011Q2

REPORT INFORMATION
  Report Type: 
  Country: None (occurrence: None)
  Receive Date: 20110608
  Receipt Date: 20110525
  Transmission Date: 20111010
  Serious: Yes (Death, Hospitalization, Other)
  Sender: FDA-Public Use
  Company Number: US-BAYER-201011555NA

PATIENT
  Age: 74 Year
  Sex: Male
  Weight: 73.469 kg

DRUGS (21)
  1. TRASYLOL [Suspect]
     Indication: AORTIC SURGERY
  2. RED BLOOD CELLS [Concomitant]
     Indication: COAGULOPATHY
     Dosage: 3 UNITS
     Dates: start: 20021027
  3. FRESH FROZEN PLASMA [Concomitant]
     Indication: COAGULOPATHY
     Dosage: 1 UNIT
  4. MANNITOL [Concomitant]
     Dosage: 25 G, UNK
     Route: 042
     Dates: start: 20021028, end: 20021028
  5. RED BLOOD CELLS [Concomitant]
     Dosage: 3 UNITS
     Dates: start: 20021028
  6. NITROGLYCERIN [Concomitant]
     Dosage: 0.4MG
     Route: 060
     Dates: start: 20000817
  7. PRAVACHOL [Concomitant]
     Dosage: 20MG
     Route: 048
     Dates: start: 20001227
  8. CELEBREX [Concomitant]
     Dosage: 200MG
     Route: 048
     Dates: start: 20000809
  9. AMBIEN [Concomitant]
     Dosage: 10 MG, UNK
     Route: 048
  10. DARVOCET [Concomitant]
     Dosage: 100MG
     Route: 048
     Dates: start: 20001227
  11. ALBUMIN (HUMAN) [Concomitant]
     Dosage: 12.5 G, UNK
     Route: 042
     Dates: start: 20021028, end: 20021028
  12. TRASYLOL [Suspect]
     Indication: CORONARY ARTERY BYPASS
     Dosage: UNK
     Route: 042
     Dates: start: 20021028
  13. ACETYLSALICYLIC ACID SRT [Concomitant]
  14. LASIX [Concomitant]
     Dosage: 20MG
     Route: 048
     Dates: start: 20000823
  15. PLAVIX [Concomitant]
     Dosage: 75MG
     Route: 048
     Dates: start: 20010425
  16. ZINACEF [Concomitant]
     Dosage: 1.5 G, UNK
     Route: 042
     Dates: start: 20021028
  17. FENTANYL [Concomitant]
     Dosage: UNK
     Route: 042
     Dates: start: 20021028
  18. SODIUM BICARBONATE [Concomitant]
     Dosage: 50 MEQ, UNK
     Route: 042
     Dates: start: 20021028, end: 20021028
  19. TRASYLOL [Suspect]
     Indication: MYECTOMY
  20. ZESTRIL [Concomitant]
     Dosage: 10MG
     Route: 048
     Dates: start: 20000823
  21. HEPARIN [Concomitant]
     Dosage: 38000 U, UNK
     Route: 042
     Dates: start: 20021028

REACTIONS (14)
  - ORGAN FAILURE [None]
  - ANHEDONIA [None]
  - RENAL FAILURE [None]
  - ANXIETY [None]
  - UNEVALUABLE EVENT [None]
  - RENAL INJURY [None]
  - INJURY [None]
  - CEREBROVASCULAR ACCIDENT [None]
  - DEPRESSION [None]
  - PAIN [None]
  - FEAR [None]
  - DEATH [None]
  - RENAL IMPAIRMENT [None]
  - CARDIAC DISORDER [None]
